FAERS Safety Report 12679184 (Version 2)
Quarter: 2016Q3

REPORT INFORMATION
  Report Type: Spontaneous
  Country: JP (occurrence: JP)
  Receive Date: 20160824
  Receipt Date: 20160831
  Transmission Date: 20161109
  Serious: Yes (Life-Threatening, Hospitalization, Disabling, Other)
  Sender: FDA-Public Use
  Company Number: JP-ACCORD-043334

PATIENT
  Age: 61 Year
  Sex: Male

DRUGS (6)
  1. FOLINIC ACID [Concomitant]
     Active Substance: LEUCOVORIN
     Indication: ADENOCARCINOMA OF COLON
     Dosage: 3 CYCLES
  2. FLUOROURACIL. [Suspect]
     Active Substance: FLUOROURACIL
     Indication: ADENOCARCINOMA OF COLON
     Dosage: MFOLFOX6: 400 MG/M2 BOLUS ON DAY 1 FOLLOWED BY 2400 MG/M2 CONTINUOUS INFUSION OVER THE NEXT 46 H
  3. IRINOTECAN [Concomitant]
     Active Substance: IRINOTECAN
     Indication: ADENOCARCINOMA OF COLON
     Dosage: 3 CYCLES
  4. TIOTROPIUM [Concomitant]
     Active Substance: TIOTROPIUM
     Route: 048
  5. OXALIPLATIN. [Concomitant]
     Active Substance: OXALIPLATIN
     Indication: ADENOCARCINOMA OF COLON
     Dosage: MFOLFOX6 ADJUVANT THERAPY
  6. SALMETEROL [Concomitant]
     Active Substance: SALMETEROL
     Route: 048

REACTIONS (4)
  - Toxic encephalopathy [Recovered/Resolved]
  - Neuropathy peripheral [Unknown]
  - Hyperammonaemia [Recovering/Resolving]
  - Coma [Recovered/Resolved]
